FAERS Safety Report 6590396-7 (Version None)
Quarter: 2010Q1

REPORT INFORMATION
  Report Type: 
  Country: None (occurrence: None)
  Receive Date: 20100219
  Receipt Date: 20100209
  Transmission Date: 20100710
  Serious: Yes (Other)
  Sender: FDA-Public Use
  Company Number: US-ROCHE-670579

PATIENT
  Sex: Female
  Weight: 63.5 kg

DRUGS (11)
  1. PEGASYS [Suspect]
     Indication: HEPATITIS C
     Dosage: OTHER INDICATION: HEPATITIS B, FORM: PRE FILLED SYRINGE
     Route: 058
     Dates: start: 20080818, end: 20100125
  2. RIBASPHERE [Suspect]
     Indication: HEPATITIS C
     Dosage: OTHER INDICATION: HEPATITIS B; DIVIDED DOSES
     Route: 048
     Dates: start: 20080818, end: 20100125
  3. LEXAPRO [Concomitant]
  4. WELLBUTRIN [Concomitant]
  5. VALIUM [Concomitant]
  6. OXYCODONE HCL [Concomitant]
  7. OMEPRAZOLE [Concomitant]
  8. COMPAZINE [Concomitant]
  9. LOPERAMIDE [Concomitant]
  10. LORATADINE [Concomitant]
  11. VITAMIN C [Concomitant]

REACTIONS (3)
  - OVARIAN CYST RUPTURED [None]
  - RED BLOOD CELL COUNT DECREASED [None]
  - WHITE BLOOD CELL COUNT DECREASED [None]
